FAERS Safety Report 7208702-9 (Version None)
Quarter: 2011Q1

REPORT INFORMATION
  Report Type: 
  Country: None (occurrence: None)
  Receive Date: 20110104
  Receipt Date: 20101227
  Transmission Date: 20110831
  Serious: Yes (Hospitalization)
  Sender: FDA-Public Use
  Company Number: IT-ROCHE-748401

PATIENT
  Sex: Male

DRUGS (1)
  1. CYMEVENE [Suspect]
     Indication: CYTOMEGALOVIRUS INFECTION
     Dosage: FORM: E355, CYMEVENE 500MG/10ML
     Route: 042
     Dates: start: 20101016, end: 20101026

REACTIONS (1)
  - COMA [None]
